FAERS Safety Report 10467566 (Version 2)
Quarter: 2014Q3

REPORT INFORMATION
  Report Type: Spontaneous
  Country: US (occurrence: US)
  Receive Date: 20140922
  Receipt Date: 20140922
  Transmission Date: 20150326
  Serious: Yes (Hospitalization)
  Sender: FDA-Public Use
  Company Number: US-GLAXOSMITHKLINE-A0887937A

PATIENT
  Sex: Male

DRUGS (2)
  1. AVANDAMET [Suspect]
     Active Substance: METFORMIN HYDROCHLORIDE\ROSIGLITAZONE MALEATE
     Indication: DIABETES MELLITUS
     Route: 048
     Dates: start: 200409, end: 200503
  2. AVANDIA [Suspect]
     Active Substance: ROSIGLITAZONE MALEATE
     Indication: DIABETES MELLITUS
     Dosage: 4MG TWICE PER DAY
     Route: 048
     Dates: start: 2000, end: 2005

REACTIONS (8)
  - Angina unstable [Not Recovered/Not Resolved]
  - Mitral valve incompetence [None]
  - Aortic arteriosclerosis [None]
  - Cardiac disorder [Unknown]
  - Aortic stenosis [None]
  - Tricuspid valve incompetence [None]
  - Coronary artery disease [Unknown]
  - Pleural effusion [Unknown]
